FAERS Safety Report 12604858 (Version 1)
Quarter: 2016Q3

REPORT INFORMATION
  Report Type: Spontaneous
  Country: US (occurrence: US)
  Receive Date: 20160728
  Receipt Date: 20160728
  Transmission Date: 20161109
  Serious: Yes (Hospitalization)
  Sender: FDA-Public Use
  Company Number: US-ALLERGAN-1625227US

PATIENT
  Age: 59 Year
  Sex: Female
  Weight: 131.97 kg

DRUGS (9)
  1. BOTOX [Suspect]
     Active Substance: ONABOTULINUMTOXINA
     Dosage: 1.5 UNITS, SINGLE
     Route: 030
     Dates: start: 20150923, end: 20150923
  2. BOTOX [Suspect]
     Active Substance: ONABOTULINUMTOXINA
     Dosage: 40 UNITS, SINGLE
     Route: 030
     Dates: start: 20150923, end: 20150923
  3. BOTOX [Suspect]
     Active Substance: ONABOTULINUMTOXINA
     Dosage: UNK, SINGLE
     Route: 030
     Dates: start: 2011, end: 2011
  4. TENORETIC [Concomitant]
     Active Substance: ATENOLOL\CHLORTHALIDONE
     Indication: HYPERTENSION
     Dosage: UNK
     Route: 048
  5. BOTOX [Suspect]
     Active Substance: ONABOTULINUMTOXINA
     Indication: TORTICOLLIS
     Dosage: 300 UNITS, SINGLE
     Route: 030
     Dates: start: 20151223, end: 20151223
  6. BOTOX [Suspect]
     Active Substance: ONABOTULINUMTOXINA
     Dosage: 40 UNITS, SINGLE
     Route: 030
     Dates: start: 20150923, end: 20150923
  7. BOTOX [Suspect]
     Active Substance: ONABOTULINUMTOXINA
     Dosage: 100 UNITS, SINGLE
     Route: 030
     Dates: start: 20150923, end: 20150923
  8. BOTOX [Suspect]
     Active Substance: ONABOTULINUMTOXINA
     Dosage: 20 UNITS, SINGLE
     Route: 030
     Dates: start: 20150923, end: 20150923
  9. BOTOX [Suspect]
     Active Substance: ONABOTULINUMTOXINA
     Dosage: 50 UNITS, SINGLE
     Route: 030
     Dates: start: 20150923, end: 20150923

REACTIONS (7)
  - Dyspnoea [Unknown]
  - Blood potassium decreased [Recovered/Resolved]
  - Respiratory disorder [Unknown]
  - Secretion discharge [Not Recovered/Not Resolved]
  - Productive cough [Not Recovered/Not Resolved]
  - Pneumonia [Not Recovered/Not Resolved]
  - Nasal congestion [Not Recovered/Not Resolved]

NARRATIVE: CASE EVENT DATE: 201602
